FAERS Safety Report 6211312-3 (Version None)
Quarter: 2009Q2

REPORT INFORMATION
  Report Type: 
  Country: None (occurrence: None)
  Receive Date: 20090602
  Receipt Date: 20090527
  Transmission Date: 20091009
  Serious: Yes (Hospitalization)
  Sender: FDA-Public Use
  Company Number: NL-TEVA-196456ISR

PATIENT
  Sex: Female

DRUGS (5)
  1. PREDNISOLONE [Suspect]
     Indication: BRONCHITIS
     Route: 048
     Dates: start: 20090515, end: 20090518
  2. AMOXICILLI [Concomitant]
     Route: 048
     Dates: start: 20090512, end: 20090519
  3. HYDROCHLOROTHIAZIDE [Concomitant]
     Dates: start: 19980122
  4. OXAZEPAM [Concomitant]
     Route: 048
     Dates: start: 19980302
  5. METOPROLOL SUCCINATE [Concomitant]
     Dates: start: 20090305

REACTIONS (3)
  - DYSPNOEA [None]
  - HYPERHIDROSIS [None]
  - TACHYCARDIA [None]
